FAERS Safety Report 15680501 (Version 1)
Quarter: 2018Q4

REPORT INFORMATION
  Report Type: Spontaneous
  Country: US (occurrence: US)
  Receive Date: 20181202
  Receipt Date: 20181202
  Transmission Date: 20190205
  Serious: Yes (Disabling, Other)
  Sender: FDA-Public Use
  Company Number: None

PATIENT
  Age: 28 Year
  Sex: Male
  Weight: 120.15 kg

DRUGS (11)
  1. COQ10 [Concomitant]
     Active Substance: UBIDECARENONE
  2. NIACIN. [Concomitant]
     Active Substance: NIACIN
  3. FISH OIL [Concomitant]
     Active Substance: FISH OIL
  4. VALERIAN TEA [Concomitant]
  5. GABAPENTIN. [Concomitant]
     Active Substance: GABAPENTIN
  6. L-TYROSINE [Concomitant]
     Active Substance: TYROSINE
  7. PROBIOTICS [Concomitant]
     Active Substance: PROBIOTICS NOS
  8. MELATONIN [Concomitant]
     Active Substance: MELATONIN
  9. CLONAZEPAM. [Concomitant]
     Active Substance: CLONAZEPAM
  10. LISINOPRIL. [Suspect]
     Active Substance: LISINOPRIL
     Indication: LONG QT SYNDROME
     Dosage: ?          QUANTITY:1 TABLET(S);?
     Route: 048
     Dates: start: 20181121, end: 20181202
  11. 5-HTP [Concomitant]
     Active Substance: OXITRIPTAN

REACTIONS (17)
  - Renal pain [None]
  - Chapped lips [None]
  - Dizziness [None]
  - Lip swelling [None]
  - Vision blurred [None]
  - Paraesthesia [None]
  - Pain [None]
  - Ocular hyperaemia [None]
  - Asthenia [None]
  - Headache [None]
  - Dissociation [None]
  - Flatulence [None]
  - Diarrhoea [None]
  - Dyspnoea [None]
  - Loss of libido [None]
  - Amnesia [None]
  - Abdominal discomfort [None]

NARRATIVE: CASE EVENT DATE: 20181202
